FAERS Safety Report 4525405-X (Version None)
Quarter: 2004Q4

REPORT INFORMATION
  Report Type: 
  Country: None (occurrence: None)
  Receive Date: 20041123
  Receipt Date: 20040923
  Transmission Date: 20050328
  Serious: Yes (Other)
  Sender: FDA-Public Use
  Company Number: 2004070151

PATIENT
  Age: 46 Year
  Sex: Male
  Weight: 78.0187 kg

DRUGS (1)
  1. LIPITOR [Suspect]
     Indication: BLOOD CHOLESTEROL INCREASED
     Dosage: 10 MG (10 MG, 1 IN 1 D), ORAL
     Route: 048
     Dates: start: 20040701, end: 20040801

REACTIONS (3)
  - HEPATIC ENZYME INCREASED [None]
  - PNEUMONIA [None]
  - RHABDOMYOLYSIS [None]
